FAERS Safety Report 11382243 (Version 1)
Quarter: 2015Q3

REPORT INFORMATION
  Report Type: Spontaneous
  Country: US (occurrence: US)
  Receive Date: 20150811
  Receipt Date: 20150811
  Transmission Date: 20151125
  Serious: No
  Sender: FDA-Public Use
  Company Number: US-ELI_LILLY_AND_COMPANY-US201003004752

PATIENT
  Sex: Male

DRUGS (5)
  1. CIALIS [Suspect]
     Active Substance: TADALAFIL
     Dosage: 40 MG, UNK
     Dates: start: 20100306
  2. CIALIS [Suspect]
     Active Substance: TADALAFIL
     Indication: ERECTILE DYSFUNCTION
     Dosage: 20 MG, UNK
  3. CITRULLINE [Concomitant]
     Active Substance: CITRULLINE
     Dosage: UNK, DAILY (1/D)
     Dates: start: 2009
  4. L-ARGININE HYDROCHLORIDE [Concomitant]
  5. METHYLPREDNISOLONE. [Concomitant]
     Active Substance: METHYLPREDNISOLONE
     Indication: MUSCLE STRAIN
     Dates: start: 20100304, end: 20100307

REACTIONS (7)
  - Eructation [Not Recovered/Not Resolved]
  - Chest pain [Recovered/Resolved]
  - Chest discomfort [Recovered/Resolved]
  - Intentional overdose [Recovered/Resolved]
  - Intentional product misuse [Recovered/Resolved]
  - Drug ineffective [Not Recovered/Not Resolved]
  - Muscle strain [Unknown]

NARRATIVE: CASE EVENT DATE: 201003
